FAERS Safety Report 5481641-X (Version None)
Quarter: 2007Q4

REPORT INFORMATION
  Report Type: 
  Country: None (occurrence: None)
  Receive Date: 20071004
  Receipt Date: 20070918
  Transmission Date: 20080405
  Serious: Yes (Other)
  Sender: FDA-Public Use
  Company Number: DSA_30648_2007

PATIENT
  Sex: Female

DRUGS (3)
  1. VASOTEC [Suspect]
     Indication: HYPERTENSION
     Dosage: (40 MG QD 40 MG ORAL), (20 MG QD 20 MG ORAL), (10 MG QD 10 MG ORAL)
     Route: 048
     Dates: start: 20070101, end: 20070101
  2. VASOTEC [Suspect]
     Indication: HYPERTENSION
     Dosage: (40 MG QD 40 MG ORAL), (20 MG QD 20 MG ORAL), (10 MG QD 10 MG ORAL)
     Route: 048
     Dates: start: 20070101, end: 20070823
  3. VASOTEC [Suspect]
     Indication: MIGRAINE
     Dosage: (10 MG 10 MG ORAL)
     Route: 048

REACTIONS (1)
  - DRUG INEFFECTIVE [None]
